FAERS Safety Report 5007898-7 (Version None)
Quarter: 2006Q2

REPORT INFORMATION
  Report Type: 
  Country: None (occurrence: None)
  Receive Date: 20060518
  Receipt Date: 20060509
  Transmission Date: 20061013
  Serious: Yes (Hospitalization)
  Sender: FDA-Public Use
  Company Number: 2006063140

PATIENT
  Age: 56 Year
  Sex: Male

DRUGS (1)
  1. CELEBREX [Suspect]
     Indication: ARTHRITIS
     Dosage: 400 MG (400 MG, 1 IN 1 D)
     Dates: start: 19990915, end: 20040215

REACTIONS (6)
  - ARTERIAL OCCLUSIVE DISEASE [None]
  - BLOOD PRESSURE ABNORMAL [None]
  - CHEST PAIN [None]
  - DYSPEPSIA [None]
  - HAEMORRHAGE [None]
  - STENT PLACEMENT [None]
